FAERS Safety Report 25150622 (Version 1)
Quarter: 2025Q2

REPORT INFORMATION
  Report Type: Spontaneous
  Country: US (occurrence: US)
  Receive Date: 20250402
  Receipt Date: 20250402
  Transmission Date: 20250717
  Serious: Yes (Other)
  Sender: BAYER HEALTHCARE LLC
  Company Number: US-BAYER-2025A042863

PATIENT
  Age: 92 Year

DRUGS (1)
  1. LOTRIMIN ANTIFUNGAL (MICONAZOLE NITRATE) [Suspect]
     Active Substance: MICONAZOLE NITRATE

REACTIONS (2)
  - Mesothelioma [None]
  - Exposure to chemical pollution [None]

NARRATIVE: CASE EVENT DATE: 20240216
